FAERS Safety Report 6540260-4 (Version None)
Quarter: 2010Q1

REPORT INFORMATION
  Report Type: 
  Country: None (occurrence: None)
  Receive Date: 20100115
  Receipt Date: 20090629
  Transmission Date: 20100710
  Serious: No
  Sender: FDA-Public Use
  Company Number: US-ABBOTT-09P-163-0582649-00

PATIENT
  Sex: Male
  Weight: 86.26 kg

DRUGS (1)
  1. ADVICOR [Suspect]
     Indication: HIGH DENSITY LIPOPROTEIN DECREASED
     Dosage: 1500/20 MG DAILY
     Route: 048
     Dates: start: 20031201

REACTIONS (1)
  - PRURITUS [None]
